FAERS Safety Report 4281612-5 (Version None)
Quarter: 2004Q1

REPORT INFORMATION
  Report Type: 
  Country: None (occurrence: None)
  Receive Date: 20040128
  Receipt Date: 20040121
  Transmission Date: 20041129
  Serious: Yes (Hospitalization)
  Sender: FDA-Public Use
  Company Number: 200321242GDDC

PATIENT
  Age: 46 Year
  Sex: Male

DRUGS (7)
  1. HYDROCORTISONE [Suspect]
     Indication: SEPTIC SHOCK
     Dosage: 200 MG/DAY
  2. HYDROCORTISONE [Suspect]
     Indication: SEPTIC SHOCK
     Dosage: 48 MG/DAY
  3. HYDROCORTISONE [Suspect]
     Indication: SEPTIC SHOCK
     Dosage: 240 MG/DAY
  4. HYDROCORTISONE [Suspect]
     Indication: SEPTIC SHOCK
     Dosage: QD
  5. VASOPRESSIN [Concomitant]
  6. NOREPINEPHRINE [Concomitant]
  7. VOLUME REPLACEMENT [Concomitant]

REACTIONS (6)
  - DISEASE RECURRENCE [None]
  - HYPERNATRAEMIA [None]
  - MENTAL DISORDER [None]
  - NERVOUS SYSTEM DISORDER [None]
  - SEPTIC SHOCK [None]
  - URINE SODIUM DECREASED [None]
